FAERS Safety Report 9181418 (Version 1)
Quarter: 2013Q1

REPORT INFORMATION
  Report Type: Spontaneous
  Country: US (occurrence: None)
  Receive Date: 20130321
  Receipt Date: 20130321
  Transmission Date: 20140127
  Serious: Yes (Death)
  Sender: FDA-Public Use
  Company Number: None

PATIENT
  Age: 68 Year
  Sex: Male

DRUGS (1)
  1. TIKOSYN [Suspect]
     Dosage: 500 MCG BID BY MOUTH
     Route: 048
     Dates: start: 20100222, end: 20130315

REACTIONS (1)
  - Death [None]
